FAERS Safety Report 7406485-0 (Version None)
Quarter: 2011Q2

REPORT INFORMATION
  Report Type: 
  Country: None (occurrence: None)
  Receive Date: 20110411
  Receipt Date: 20110401
  Transmission Date: 20111010
  Serious: Yes (Other)
  Sender: FDA-Public Use
  Company Number: US-PURDUE-USA-2011-0066347

PATIENT
  Sex: Male

DRUGS (1)
  1. OXYCONTIN [Suspect]
     Indication: PRODUCT USED FOR UNKNOWN INDICATION
     Dosage: 10 MG, UNK

REACTIONS (10)
  - DRUG INEFFECTIVE [None]
  - CONSTIPATION [None]
  - DEPRESSION [None]
  - BEDRIDDEN [None]
  - PAIN [None]
  - FOREIGN BODY [None]
  - DRUG EFFECT DELAYED [None]
  - SCOTOMA [None]
  - ACTIVITIES OF DAILY LIVING IMPAIRED [None]
  - SEXUAL DYSFUNCTION [None]
